FAERS Safety Report 7768534-X (Version None)
Quarter: 2011Q3

REPORT INFORMATION
  Report Type: 
  Country: None (occurrence: None)
  Receive Date: 20110922
  Receipt Date: 20110210
  Transmission Date: 20111222
  Serious: No
  Sender: FDA-Public Use
  Company Number: US-ASTRAZENECA-2011SE07962

PATIENT
  Age: 62 Year
  Sex: Male
  Weight: 106.6 kg

DRUGS (8)
  1. GLUCOPHAGE [Concomitant]
     Indication: DIABETES MELLITUS
  2. SEROQUEL [Suspect]
     Dosage: AN EXTRA SEROQUEL XR 50 MG IN THE MORNING
     Route: 048
  3. SEROQUEL [Suspect]
     Route: 048
  4. SEROQUEL [Suspect]
     Route: 048
  5. ATENOLOL [Concomitant]
     Indication: HYPERTENSION
  6. SEROQUEL [Suspect]
     Indication: ANXIETY
     Route: 048
  7. SEROQUEL [Suspect]
     Route: 048
  8. SEROQUEL [Suspect]
     Route: 048

REACTIONS (3)
  - DRUG INEFFECTIVE [None]
  - INCORRECT DOSE ADMINISTERED [None]
  - NEUROPATHY PERIPHERAL [None]
